FAERS Safety Report 17013804 (Version 1)
Quarter: 2019Q4

REPORT INFORMATION
  Report Type: Spontaneous
  Country: US (occurrence: US)
  Receive Date: 20191110
  Receipt Date: 20191110
  Transmission Date: 20200122
  Serious: No
  Sender: FDA-Public Use
  Company Number: US-GLAXOSMITHKLINE-US2019200892

PATIENT
  Age: 71 Year
  Sex: Male

DRUGS (1)
  1. FLONASE [Suspect]
     Active Substance: FLUTICASONE PROPIONATE
     Indication: MULTIPLE ALLERGIES
     Dosage: UNK, BID (2 SPRAYS IN EACH NOSTRIL. 7-8 DAYS)

REACTIONS (2)
  - Drug ineffective [Unknown]
  - Product use issue [Unknown]
